FAERS Safety Report 4753898-1 (Version None)
Quarter: 2005Q3

REPORT INFORMATION
  Report Type: 
  Country: None (occurrence: None)
  Receive Date: 20050823
  Receipt Date: 20050512
  Transmission Date: 20060218
  Serious: No
  Sender: FDA-Public Use
  Company Number: 214506

PATIENT
  Age: 28 Year
  Sex: Male

DRUGS (12)
  1. RAPTIVA [Suspect]
     Indication: PSORIASIS
     Dosage: 1.1 ML 1/WEEK SUBCUTANEOUS
     Route: 058
     Dates: start: 20050301
  2. TRIAMCINOLONE [Suspect]
     Indication: PSORIASIS
  3. LAUNDRY DETERGENT [Suspect]
     Indication: DRUG USE FOR UNKNOWN INDICATION
  4. GARLIQUE [Concomitant]
  5. OCUVITE [Concomitant]
  6. VITAMIN E [Concomitant]
  7. VITAMIN A [Concomitant]
  8. SELENIUM NOS [Concomitant]
  9. LUTEIN [Concomitant]
  10. COPPER NOS [Concomitant]
  11. ASCORBIC ACID [Concomitant]
  12. LUBRIDERM LOTION NOS [Concomitant]

REACTIONS (2)
  - ERYTHEMA [None]
  - NAUSEA [None]
